FAERS Safety Report 7945747-5 (Version None)
Quarter: 2011Q4

REPORT INFORMATION
  Report Type: 
  Country: None (occurrence: None)
  Receive Date: 20111129
  Receipt Date: 20111118
  Transmission Date: 20120403
  Serious: Yes (Hospitalization, Other)
  Sender: FDA-Public Use
  Company Number: US-CELGENEUS-163-21880-11112937

PATIENT
  Sex: Male

DRUGS (2)
  1. REVLIMID [Suspect]
     Dosage: 10 MILLIGRAM
     Route: 048
     Dates: start: 20111101
  2. REVLIMID [Suspect]
     Dosage: 15 MILLIGRAM
     Route: 048
     Dates: start: 20111101, end: 20111101

REACTIONS (3)
  - RENAL IMPAIRMENT [None]
  - VIITH NERVE PARALYSIS [None]
  - CEREBROVASCULAR ACCIDENT [None]
